FAERS Safety Report 13782012 (Version 3)
Quarter: 2017Q4

REPORT INFORMATION
  Report Type: Spontaneous
  Country: ZA (occurrence: ZA)
  Receive Date: 20170724
  Receipt Date: 20171011
  Transmission Date: 20180320
  Serious: Yes (Hospitalization, Disabling)
  Sender: FDA-Public Use
  Company Number: ZA-JNJFOC-20170714111

PATIENT
  Age: 34 Year
  Sex: Male
  Weight: 69.3 kg

DRUGS (22)
  1. ETHIONAMIDE [Suspect]
     Active Substance: ETHIONAMIDE
     Indication: PULMONARY TUBERCULOSIS
     Route: 065
     Dates: start: 20160803
  2. ABACAVIR. [Concomitant]
     Active Substance: ABACAVIR
     Indication: HIV INFECTION
     Route: 065
     Dates: start: 20160919
  3. NEVIRAPINE. [Concomitant]
     Active Substance: NEVIRAPINE
     Indication: HIV INFECTION
     Route: 065
     Dates: start: 20160919
  4. PYRAZINAMIDE. [Suspect]
     Active Substance: PYRAZINAMIDE
     Indication: PULMONARY TUBERCULOSIS
     Route: 048
     Dates: start: 20160718, end: 20160803
  5. TERIZIDONE [Suspect]
     Active Substance: TERIZIDONE
     Indication: PULMONARY TUBERCULOSIS
     Route: 065
     Dates: start: 20160718
  6. LINEZOLID. [Suspect]
     Active Substance: LINEZOLID
     Indication: PULMONARY TUBERCULOSIS
     Route: 065
     Dates: start: 20160803
  7. SIRTURO [Suspect]
     Active Substance: BEDAQUILINE FUMARATE
     Indication: PULMONARY TUBERCULOSIS
     Route: 048
     Dates: start: 20170404
  8. PYRAZINAMIDE. [Suspect]
     Active Substance: PYRAZINAMIDE
     Indication: PULMONARY TUBERCULOSIS
     Route: 048
     Dates: start: 20160803
  9. PREDNISONE. [Concomitant]
     Active Substance: PREDNISONE
     Route: 048
     Dates: start: 20170421
  10. LAMIVUDINE. [Concomitant]
     Active Substance: LAMIVUDINE
     Indication: HIV INFECTION
     Route: 065
     Dates: start: 20160919
  11. PYRAZINAMIDE. [Suspect]
     Active Substance: PYRAZINAMIDE
     Indication: PULMONARY TUBERCULOSIS
     Route: 048
     Dates: start: 20170404
  12. CLOFAZIMINE [Suspect]
     Active Substance: CLOFAZIMINE
     Indication: PULMONARY TUBERCULOSIS
     Route: 048
  13. ETHIONAMIDE [Suspect]
     Active Substance: ETHIONAMIDE
     Indication: PULMONARY TUBERCULOSIS
     Route: 065
     Dates: start: 20160718, end: 20160803
  14. LINEZOLID. [Suspect]
     Active Substance: LINEZOLID
     Indication: PULMONARY TUBERCULOSIS
     Route: 065
     Dates: start: 20170404
  15. SIRTURO [Suspect]
     Active Substance: BEDAQUILINE FUMARATE
     Indication: PULMONARY TUBERCULOSIS
     Route: 048
     Dates: start: 20160803
  16. DELAMANID [Suspect]
     Active Substance: DELAMANID
     Indication: PULMONARY TUBERCULOSIS
     Route: 048
     Dates: start: 20170421
  17. ISONIAZID. [Suspect]
     Active Substance: ISONIAZID
     Indication: PULMONARY TUBERCULOSIS
     Route: 048
     Dates: start: 20170404
  18. LEVOFLOXACIN. [Suspect]
     Active Substance: LEVOFLOXACIN
     Indication: PULMONARY TUBERCULOSIS
     Route: 048
     Dates: start: 20170404
  19. LEVOFLOXACIN. [Suspect]
     Active Substance: LEVOFLOXACIN
     Indication: PULMONARY TUBERCULOSIS
     Route: 048
     Dates: start: 20160803
  20. TERIZIDONE [Suspect]
     Active Substance: TERIZIDONE
     Indication: PULMONARY TUBERCULOSIS
     Route: 065
     Dates: start: 20160803
  21. EPILIM [Concomitant]
     Active Substance: VALPROATE SODIUM
     Route: 048
     Dates: start: 20170421
  22. SIRTURO [Suspect]
     Active Substance: BEDAQUILINE FUMARATE
     Indication: PULMONARY TUBERCULOSIS
     Route: 048
     Dates: end: 20170203

REACTIONS (3)
  - Seizure [Recovered/Resolved]
  - Facial paralysis [Unknown]
  - Confusional state [Unknown]

NARRATIVE: CASE EVENT DATE: 201702
